FAERS Safety Report 8966240 (Version 1)
Quarter: 2012Q4

REPORT INFORMATION
  Report Type: 
  Country: US (occurrence: US)
  Receive Date: 20121217
  Receipt Date: 20121217
  Transmission Date: 20130627
  Serious: Yes (Other)
  Sender: FDA-Public Use
  Company Number: US-PFIZER INC-2012313710

PATIENT
  Age: 69 Year
  Sex: Female
  Weight: 72.56 kg

DRUGS (3)
  1. BEXTRA [Suspect]
     Indication: OSTEOARTHRITIS
     Dosage: once a day
     Route: 048
     Dates: start: 2004, end: 2005
  2. IBUPROFEN [Concomitant]
     Indication: OSTEOARTHRITIS
     Dosage: 800 mg, as needed
  3. CORTISONE [Concomitant]
     Dosage: Every two to three months

REACTIONS (4)
  - Intervertebral disc protrusion [Unknown]
  - Arthritis [Unknown]
  - Exostosis [Unknown]
  - Spondylitis [Unknown]
